FAERS Safety Report 8509120 (Version 2)
Quarter: 2013Q1

REPORT INFORMATION
  Report Type: Spontaneous
  Country: US (occurrence: US)
  Receive Date: 20120412
  Receipt Date: 20130125
  Transmission Date: 20140127
  Serious: No
  Sender: FDA-Public Use
  Company Number: US-ASTRAZENECA-2011SE16753

PATIENT
  Age: 66 Year
  Sex: Female

DRUGS (5)
  1. NEXIUM [Suspect]
     Indication: GASTROOESOPHAGEAL REFLUX DISEASE
     Route: 048
  2. OMEPRAZOLE [Suspect]
     Indication: GASTROOESOPHAGEAL REFLUX DISEASE
     Route: 048
  3. LEVOXYL [Concomitant]
  4. TYLENOL [Concomitant]
  5. VIT B COMPLEX WITH C [Concomitant]

REACTIONS (3)
  - Malaise [Unknown]
  - Drug dose omission [Unknown]
  - Drug ineffective [Unknown]
